FAERS Safety Report 22006975 (Version 1)
Quarter: 2023Q1

REPORT INFORMATION
  Report Type: Other
  Country: US (occurrence: None)
  Receive Date: 20230217
  Receipt Date: 20230217
  Transmission Date: 20230418
  Serious: Yes (Hospitalization)
  Sender: FDA-Public Use
  Company Number: US-ROCHE-3286935

PATIENT
  Age: 54 Year
  Sex: Male

DRUGS (1)
  1. OCREVUS [Suspect]
     Active Substance: OCRELIZUMAB
     Indication: Relapsing multiple sclerosis
     Dosage: SUBSEQUENTLY 600MG FOR EVERY 6 MONTHS; DATE OF TREATMENT: 05/JAN/2023 28/JUN/2022, 02/DEC/2021, 16/D
     Route: 065

REACTIONS (1)
  - Infection [Unknown]
